FAERS Safety Report 9799539 (Version 1)
Quarter: 2014Q1

REPORT INFORMATION
  Report Type: Spontaneous
  Country: US (occurrence: US)
  Receive Date: 20140106
  Receipt Date: 20140106
  Transmission Date: 20141002
  Serious: No
  Sender: FDA-Public Use
  Company Number: US-GILEAD-2010-0030136

PATIENT
  Age: 78 Year
  Sex: Female
  Weight: 59.42 kg

DRUGS (14)
  1. LETAIRIS [Suspect]
     Indication: PULMONARY ARTERIAL HYPERTENSION
     Route: 048
     Dates: start: 20090408
  2. ADCIRCA [Concomitant]
  3. METOPROLOL [Concomitant]
  4. PROTONIX [Concomitant]
  5. LASIX [Concomitant]
  6. LOPRESSOR HCT [Concomitant]
  7. TYLENOL [Concomitant]
  8. LANTUS [Concomitant]
  9. IRON [Concomitant]
  10. CENTRUM [Concomitant]
  11. ZOCOR [Concomitant]
  12. COUMADIN [Concomitant]
  13. DIOVAN [Concomitant]
  14. OMEPRAZOLE [Concomitant]

REACTIONS (2)
  - Nasal congestion [Unknown]
  - Oedema peripheral [Unknown]
